FAERS Safety Report 15571303 (Version 1)
Quarter: 2018Q4

REPORT INFORMATION
  Report Type: Spontaneous
  Country: US (occurrence: US)
  Receive Date: 20181031
  Receipt Date: 20181031
  Transmission Date: 20190205
  Serious: No
  Sender: FDA-Public Use
  Company Number: US-SUNOVION-2018SUN004264

PATIENT
  Sex: Female
  Weight: 37.64 kg

DRUGS (18)
  1. BROVANA [Suspect]
     Active Substance: ARFORMOTEROL TARTRATE
     Dosage: UNK
     Route: 055
  2. DORZOLAMIDE [Concomitant]
     Active Substance: DORZOLAMIDE
     Dosage: 1 BID, BID
  3. BIOTIN [Concomitant]
     Active Substance: BIOTIN
     Dosage: 1 UNK, QD
  4. BUDESONIDE. [Concomitant]
     Active Substance: BUDESONIDE
     Dosage: 1 SUSPENSION, BID
  5. SPIRONOLACTONE AND HYDROCHLOROTHIAZIDE [Concomitant]
     Active Substance: HYDROCHLOROTHIAZIDE\SPIRONOLACTONE
     Dosage: 1 TAB, QD
  6. AZITHROMYCIN ANHYDROUS. [Concomitant]
     Active Substance: AZITHROMYCIN ANHYDROUS
     Dosage: 1 TAB EVERY MONDAY, WEDNESDAY AND FRIDAY
     Route: 048
  7. METOPROLOL TARTRATE. [Concomitant]
     Active Substance: METOPROLOL TARTRATE
     Dosage: 12.5 MG, QD
  8. LONHALA MAGNAIR [Concomitant]
     Active Substance: GLYCOPYRROLATE
     Dosage: 25 MCG/1ML
     Route: 055
     Dates: end: 20181016
  9. BRIMONIDINE [Concomitant]
     Active Substance: BRIMONIDINE TARTRATE
     Dosage: UNK, BID
  10. LATANOPROST. [Concomitant]
     Active Substance: LATANOPROST
     Dosage: 1 GTT, QD
  11. COMBIVENT RESPIMAT [Concomitant]
     Active Substance: ALBUTEROL SULFATE\IPRATROPIUM BROMIDE
     Dosage: 1 PUFF, 4 TIMES DAILY
     Route: 055
  12. THEOPHYLLINE AND EPHEDRINE [Concomitant]
     Dosage: 225 MG, 12HR DAILY
  13. VENTOLIN HFA [Concomitant]
     Active Substance: ALBUTEROL SULFATE
     Dosage: 2 UNK, Q4H
  14. PERCOCET [Concomitant]
     Active Substance: ACETAMINOPHEN\OXYCODONE HYDROCHLORIDE
     Dosage: 1-2 TABLET EVERY 6 HOURS
  15. IPRATROPIUM W/SALBUTAMOL [Concomitant]
     Dosage: 1 SOLUTION, Q4H
  16. CALCIUM [Concomitant]
     Active Substance: CALCIUM
     Dosage: 600 MG, QD
  17. VITAMIN D [Concomitant]
     Active Substance: CHOLECALCIFEROL
     Dosage: 2000 IU, QD
  18. PREDNISONE. [Concomitant]
     Active Substance: PREDNISONE
     Dosage: 5 MG, QOD

REACTIONS (8)
  - Throat irritation [Unknown]
  - Hypersensitivity [Unknown]
  - Cough [Unknown]
  - Palpitations [Unknown]
  - Dyspnoea [Unknown]
  - Chest discomfort [Unknown]
  - Chest pain [Unknown]
  - Oropharyngeal pain [Unknown]
